FAERS Safety Report 10960032 (Version 2)
Quarter: 2015Q3

REPORT INFORMATION
  Report Type: Spontaneous
  Country: US (occurrence: US)
  Receive Date: 20150327
  Receipt Date: 20150825
  Transmission Date: 20151125
  Serious: Yes (Other)
  Sender: FDA-Public Use
  Company Number: US-AMGEN-USASL2015027386

PATIENT
  Age: 45 Year
  Sex: Male
  Weight: 122.45 kg

DRUGS (3)
  1. ADVIL (MEFENAMIC ACID) [Concomitant]
     Active Substance: MEFENAMIC ACID
     Dosage: AS NEEDED
  2. ALEVE [Concomitant]
     Active Substance: NAPROXEN SODIUM
     Dosage: AS NEEDED
  3. ENBREL [Suspect]
     Active Substance: ETANERCEPT
     Indication: PSORIASIS
     Dosage: 50 MG, 2 TIMES/WK
     Route: 058
     Dates: start: 201412

REACTIONS (5)
  - Surgery [Unknown]
  - Respiratory tract infection [Unknown]
  - Accident [Unknown]
  - Infection [Unknown]
  - Rib fracture [Unknown]

NARRATIVE: CASE EVENT DATE: 20150507
